FAERS Safety Report 8220905-3 (Version None)
Quarter: 2012Q1

REPORT INFORMATION
  Report Type: 
  Country: None (occurrence: None)
  Receive Date: 20120319
  Receipt Date: 20120314
  Transmission Date: 20120608
  Serious: No
  Sender: FDA-Public Use
  Company Number: US-TEVA-328284USA

PATIENT
  Sex: Female
  Weight: 52.21 kg

DRUGS (3)
  1. PREDNISONE [Concomitant]
     Indication: RHEUMATOID ARTHRITIS
  2. TRAMADOL HCL [Concomitant]
     Indication: RHEUMATOID ARTHRITIS
  3. PLAN B ONE-STEP [Suspect]
     Indication: POST COITAL CONTRACEPTION
     Dosage: 1.5 MILLIGRAM;
     Route: 048
     Dates: start: 20120313, end: 20120313

REACTIONS (4)
  - POLLAKIURIA [None]
  - PELVIC PAIN [None]
  - CYSTITIS [None]
  - VAGINAL ODOUR [None]
